FAERS Safety Report 11258389 (Version 2)
Quarter: 2015Q3

REPORT INFORMATION
  Report Type: Spontaneous
  Country: US (occurrence: US)
  Receive Date: 20150710
  Receipt Date: 20150731
  Transmission Date: 20151125
  Serious: Yes (Death, Other)
  Sender: FDA-Public Use
  Company Number: US-INCYTE CORPORATION-2015IN002198

PATIENT
  Age: 72 Year
  Sex: Female
  Weight: 47.12 kg

DRUGS (6)
  1. PREDNISONE. [Concomitant]
     Active Substance: PREDNISONE
     Dosage: 5 MG
  2. SPIRIVA [Concomitant]
     Active Substance: TIOTROPIUM BROMIDE MONOHYDRATE
     Dosage: 18 MCG
  3. JAKAFI [Suspect]
     Active Substance: RUXOLITINIB
     Indication: MYELOFIBROSIS
     Dosage: 15 MG, BID
     Route: 048
     Dates: start: 20140802
  4. ALBUTEROL SULFATE. [Concomitant]
     Active Substance: ALBUTEROL SULFATE
     Dosage: 2.5MG/3 ML (0.083%) NEB SOLUTION
  5. PREDNISONE. [Concomitant]
     Active Substance: PREDNISONE
     Dosage: 10 MG, QD
  6. SYMBICORT [Concomitant]
     Active Substance: BUDESONIDE\FORMOTEROL FUMARATE DIHYDRATE
     Dosage: 160 MCG-4.5 MCG

REACTIONS (16)
  - Cough [Unknown]
  - Abdominal pain [Unknown]
  - Bronchospasm [Unknown]
  - Increased appetite [Unknown]
  - Purpura senile [Unknown]
  - Ecchymosis [Unknown]
  - Platelet count decreased [Unknown]
  - Petechiae [Unknown]
  - Lung cancer metastatic [Fatal]
  - Atrial fibrillation [Unknown]
  - White blood cell count increased [Unknown]
  - Gingival bleeding [Recovered/Resolved]
  - Contusion [Unknown]
  - Depression [Unknown]
  - Hiatus hernia [Unknown]
  - Weight increased [Unknown]

NARRATIVE: CASE EVENT DATE: 2014
